FAERS Safety Report 9208745 (Version 1)
Quarter: 2013Q2

REPORT INFORMATION
  Report Type: Spontaneous
  Country: US (occurrence: US)
  Receive Date: 20130404
  Receipt Date: 20130404
  Transmission Date: 20140414
  Serious: Yes (Other)
  Sender: FDA-Public Use
  Company Number: US-PFIZER INC-2013103227

PATIENT
  Age: 50 Year
  Sex: Female
  Weight: 54.42 kg

DRUGS (2)
  1. LYRICA [Suspect]
     Indication: HERPES ZOSTER
     Dosage: 50 MG, 3X/DAY
     Route: 048
     Dates: start: 201211, end: 2012
  2. LYRICA [Suspect]
     Dosage: 50 MG DAILY
     Route: 048
     Dates: start: 2012

REACTIONS (7)
  - Herpes zoster [Not Recovered/Not Resolved]
  - Urticaria [Not Recovered/Not Resolved]
  - Drug intolerance [Unknown]
  - Sleep disorder [Not Recovered/Not Resolved]
  - Nausea [Not Recovered/Not Resolved]
  - Pruritus [Not Recovered/Not Resolved]
  - Logorrhoea [Not Recovered/Not Resolved]
